FAERS Safety Report 9252353 (Version 1)
Quarter: 2013Q1

REPORT INFORMATION
  Report Type: Spontaneous
  Country: US (occurrence: None)
  Receive Date: 20130305
  Receipt Date: 20130305
  Transmission Date: 20140127
  Serious: Yes (Hospitalization)
  Sender: FDA-Public Use
  Company Number: 163-21880-12092511

PATIENT
  Age: 81 Year
  Sex: Male

DRUGS (11)
  1. REVLIMID (LENALIDOMIDE) (CAPSULES) [Suspect]
     Indication: PLASMA CELL MYELOMA
     Dosage: 07/26/2012 - ONGOING, CAPSULE, 25 MG, 21 IN 28 D, PO
  2. ASA (ACETYLSALICYLIC ACID) [Concomitant]
  3. OMEPRAZOLE (OMEPRAZOLE) [Concomitant]
  4. COUMADIN (WARFARIN SODIUM) [Concomitant]
  5. ZOCOR (SIMVASTATIN) [Concomitant]
  6. ALBUTEROL SULFATE (SALBUTAMOL SULFATE) [Concomitant]
  7. SYNTHROID (LEVOTHYROXINE SODIUM) [Concomitant]
  8. TOPROL XL (METOPROLOL SUCCINATE) [Concomitant]
  9. LASIX (FUROSEMIDE) [Concomitant]
  10. FLOMAX (TAMSULOSIN HYDROCHLORIDE) [Concomitant]
  11. DIGOXIN (DIGOXIN) [Concomitant]

REACTIONS (1)
  - Pneumonia [None]
